FAERS Safety Report 23074924 (Version 7)
Quarter: 2024Q1

REPORT INFORMATION
  Report Type: Report from Study
  Country: US (occurrence: US)
  Receive Date: 20231017
  Receipt Date: 20240326
  Transmission Date: 20240409
  Serious: Yes (Hospitalization)
  Sender: FDA-Public Use
  Company Number: US-JNJFOC-20230870228

PATIENT
  Age: 75 Year
  Sex: Female
  Weight: 95.5 kg

DRUGS (7)
  1. SELEXIPAG [Suspect]
     Active Substance: SELEXIPAG
     Indication: Pulmonary hypertension
     Dosage: EXPIRY: 31-JUL-2025
     Route: 048
  2. ADEMPAS [Suspect]
     Active Substance: RIOCIGUAT
     Indication: Product used for unknown indication
     Dosage: 1.5MG THREE TIMES DAILY
     Route: 065
  3. ADEMPAS [Suspect]
     Active Substance: RIOCIGUAT
     Dosage: TWICE A DAY
  4. XARELTO [Concomitant]
     Active Substance: RIVAROXABAN
  5. ELIQUIS [Concomitant]
     Active Substance: APIXABAN
  6. WARFARIN [Concomitant]
     Active Substance: WARFARIN
  7. TRACLEER [Concomitant]
     Active Substance: BOSENTAN

REACTIONS (9)
  - Hypotension [Unknown]
  - Withdrawal syndrome [Unknown]
  - Dehydration [Unknown]
  - Abdominal pain [Not Recovered/Not Resolved]
  - Abdominal pain upper [Unknown]
  - Dizziness [Unknown]
  - Anxiety [Unknown]
  - Depression [Unknown]
  - Diarrhoea [Unknown]

NARRATIVE: CASE EVENT DATE: 20230825
